FAERS Safety Report 6067070-9 (Version None)
Quarter: 2009Q1

REPORT INFORMATION
  Report Type: 
  Country: None (occurrence: None)
  Receive Date: 20090205
  Receipt Date: 20090129
  Transmission Date: 20090719
  Serious: Yes (Hospitalization)
  Sender: FDA-Public Use
  Company Number: JP-MERCK-0901USA04006

PATIENT
  Age: 50 Year
  Sex: Male

DRUGS (6)
  1. PROPECIA [Suspect]
     Indication: ANDROGENETIC ALOPECIA
     Route: 048
     Dates: start: 20081001, end: 20090106
  2. PEPCID [Concomitant]
     Indication: GASTROENTERITIS
     Route: 048
  3. GASTROM [Concomitant]
     Indication: GASTROENTERITIS
     Route: 048
  4. BIOFERMIN [Concomitant]
     Indication: GASTROENTERITIS
     Route: 048
  5. PL-GRANULES [Concomitant]
     Indication: NASOPHARYNGITIS
     Route: 048
  6. DEPAS [Concomitant]
     Route: 048

REACTIONS (1)
  - LIVER DISORDER [None]
